FAERS Safety Report 13364961 (Version 1)
Quarter: 2017Q1

REPORT INFORMATION
  Report Type: Spontaneous
  Country: US (occurrence: US)
  Receive Date: 20170323
  Receipt Date: 20170323
  Transmission Date: 20170429
  Serious: No
  Sender: FDA-Public Use
  Company Number: US-ROCHE-1471647

PATIENT
  Sex: Male
  Weight: 81.72 kg

DRUGS (5)
  1. XOLAIR [Suspect]
     Active Substance: OMALIZUMAB
     Indication: URTICARIA
     Route: 058
     Dates: start: 20140904
  2. ALLEGRA [Concomitant]
     Active Substance: FEXOFENADINE HYDROCHLORIDE
     Indication: URTICARIA CHRONIC
     Route: 048
     Dates: start: 20130918
  3. DOXEPIN [Concomitant]
     Active Substance: DOXEPIN
     Indication: URTICARIA CHRONIC
     Dosage: HS
     Route: 048
     Dates: start: 20140812
  4. SINGULAIR [Concomitant]
     Active Substance: MONTELUKAST SODIUM
     Indication: RHINITIS ALLERGIC
     Dosage: HS
     Route: 048
     Dates: start: 20110126
  5. FAMOTIDINE. [Concomitant]
     Active Substance: FAMOTIDINE
     Indication: URTICARIA
     Dosage: 2 TABS AT HS
     Route: 048
     Dates: start: 20140812

REACTIONS (1)
  - Tinnitus [Not Recovered/Not Resolved]
